FAERS Safety Report 10170221 (Version 1)
Quarter: 2014Q2

REPORT INFORMATION
  Report Type: Spontaneous
  Country: US (occurrence: US)
  Receive Date: 20140513
  Receipt Date: 20140513
  Transmission Date: 20141212
  Serious: Yes (Other)
  Sender: FDA-Public Use
  Company Number: US-BRISTOL-MYERS SQUIBB COMPANY-20694212

PATIENT
  Sex: Male

DRUGS (1)
  1. FARXIGA [Suspect]

REACTIONS (3)
  - Myocardial infarction [Unknown]
  - Pollakiuria [Unknown]
  - Hypovolaemia [Unknown]
